FAERS Safety Report 13755358 (Version 4)
Quarter: 2017Q3

REPORT INFORMATION
  Report Type: Spontaneous
  Country: US (occurrence: US)
  Receive Date: 20170714
  Receipt Date: 20170901
  Transmission Date: 20171127
  Serious: Yes (Other)
  Sender: FDA-Public Use
  Company Number: US-PFIZER INC-2017304144

PATIENT
  Age: 64 Year
  Sex: Female

DRUGS (2)
  1. SULFASALAZINE. [Suspect]
     Active Substance: SULFASALAZINE
     Indication: RHEUMATOID ARTHRITIS
     Dosage: 500 MG, UNK
     Dates: start: 201205, end: 201404
  2. SULFASALAZINE. [Suspect]
     Active Substance: SULFASALAZINE
     Dosage: 2 DF, 2X/DAY (BID)
     Route: 048
     Dates: start: 2012, end: 2016

REACTIONS (4)
  - Wheezing [Unknown]
  - Drug hypersensitivity [Unknown]
  - Pneumonitis [Unknown]
  - Cough [Unknown]

NARRATIVE: CASE EVENT DATE: 2016
